FAERS Safety Report 16290785 (Version 2)
Quarter: 2023Q1

REPORT INFORMATION
  Report Type: Spontaneous
  Country: US (occurrence: US)
  Receive Date: 20190509
  Receipt Date: 20230130
  Transmission Date: 20230417
  Serious: No
  Sender: FDA-Public Use
  Company Number: US-PFIZER INC-2019197311

PATIENT
  Age: 67 Year
  Sex: Male
  Weight: 113.38 kg

DRUGS (3)
  1. XELJANZ XR [Suspect]
     Active Substance: TOFACITINIB CITRATE
     Indication: Rheumatoid arthritis
     Dosage: 11 MG, DAILY
     Route: 048
     Dates: start: 20180509
  2. VITAMIN D3 [Concomitant]
     Active Substance: CHOLECALCIFEROL
     Dosage: 1000 IU, UNK
  3. ZINC SULFATE [Concomitant]
     Active Substance: ZINC SULFATE
     Dosage: UNK (ZINC SULFATE 220)

REACTIONS (2)
  - Condition aggravated [Unknown]
  - Feeling cold [Unknown]
